FAERS Safety Report 7624478-5 (Version None)
Quarter: 2011Q3

REPORT INFORMATION
  Report Type: 
  Country: None (occurrence: None)
  Receive Date: 20110720
  Receipt Date: 20110707
  Transmission Date: 20111222
  Serious: Yes (Hospitalization, Other)
  Sender: FDA-Public Use
  Company Number: US-BAYER-201035215NA

PATIENT
  Age: 38 Year
  Sex: Female
  Weight: 63.039 kg

DRUGS (2)
  1. DOCUSATE [Concomitant]
  2. YAZ [Suspect]
     Indication: CONTRACEPTION
     Dosage: UNK
     Route: 048
     Dates: start: 20060101, end: 20060801

REACTIONS (1)
  - PULMONARY EMBOLISM [None]
